FAERS Safety Report 16330126 (Version 1)
Quarter: 2019Q2

REPORT INFORMATION
  Report Type: Spontaneous
  Country: CN (occurrence: CN)
  Receive Date: 20190520
  Receipt Date: 20190520
  Transmission Date: 20190711
  Serious: Yes (Hospitalization)
  Sender: FDA-Public Use
  Company Number: CN-TERSERA THERAPEUTICS LLC-2019TRS000742

PATIENT

DRUGS (3)
  1. CYCLOPHOSPHAMIDE. [Suspect]
     Active Substance: CYCLOPHOSPHAMIDE
     Indication: CHEMOTHERAPY
     Dosage: 0.85 GRAM, QD
     Route: 041
     Dates: start: 20190402
  2. ZOLADEX [Suspect]
     Active Substance: GOSERELIN ACETATE
     Indication: CHEMOTHERAPY
     Dosage: 3.6 MG, QD
     Route: 058
     Dates: start: 20190401
  3. PIRARUBICIN HYDROCHLORIDE [Suspect]
     Active Substance: PIRARUBICIN HYDROCHLORIDE
     Indication: CHEMOTHERAPY
     Dosage: 85 MG, QD
     Route: 041
     Dates: start: 20190402

REACTIONS (1)
  - Granulocyte count decreased [Recovered/Resolved]

NARRATIVE: CASE EVENT DATE: 20190423
